FAERS Safety Report 7139028-X (Version None)
Quarter: 2010Q4

REPORT INFORMATION
  Report Type: 
  Country: None (occurrence: None)
  Receive Date: 20101206
  Receipt Date: 20101124
  Transmission Date: 20110411
  Serious: Yes (Hospitalization)
  Sender: FDA-Public Use
  Company Number: A0897681A

PATIENT
  Age: 72 Year
  Sex: Male

DRUGS (1)
  1. AVANDAMET [Suspect]
     Route: 048
     Dates: start: 20060901, end: 20100301

REACTIONS (2)
  - CHEST PAIN [None]
  - CORONARY ARTERY BYPASS [None]
